FAERS Safety Report 12782239 (Version 1)
Quarter: 2016Q3

REPORT INFORMATION
  Report Type: Spontaneous
  Country: US (occurrence: US)
  Receive Date: 20160927
  Receipt Date: 20160927
  Transmission Date: 20161109
  Serious: Yes (Other)
  Sender: FDA-Public Use
  Company Number: US-BEH-200814081

PATIENT
  Age: 59 Year
  Sex: Female
  Weight: 90 kg

DRUGS (35)
  1. VIVAGLOBIN [Suspect]
     Active Substance: HUMAN IMMUNOGLOBULIN G
     Route: 058
  2. NEXIUM [Concomitant]
     Active Substance: ESOMEPRAZOLE MAGNESIUM
     Dosage: DAILY DOSE QUANTITY: 80, DAILY DOSE UNIT: MG
     Route: 048
     Dates: start: 20080717
  3. CEREFOLIN [Concomitant]
     Active Substance: CYANOCOBALAMIN CO-57\LEVOMEFOLATE CALCIUM\PYRIDOXINE HYDROCHLORIDE\RIBOFLAVIN
     Route: 048
     Dates: start: 20080717
  4. BEL-TABS [Concomitant]
     Route: 048
     Dates: start: 20080717
  5. DIPHENHYDRAMINE HCL [Concomitant]
     Active Substance: DIPHENHYDRAMINE HYDROCHLORIDE
     Indication: ANAPHYLACTIC REACTION
     Dosage: DAILY DOSE QUANTITY: 25, DAILY DOSE UNIT: MG
     Route: 048
     Dates: start: 20080726
  6. VIVAGLOBIN [Suspect]
     Active Substance: HUMAN IMMUNOGLOBULIN G
     Indication: DEMYELINATING POLYNEUROPATHY
     Route: 058
  7. VIVAGLOBIN [Suspect]
     Active Substance: HUMAN IMMUNOGLOBULIN G
     Route: 058
  8. ATENOLOL. [Concomitant]
     Active Substance: ATENOLOL
     Dosage: DAILY DOSE QUANTITY: 12.5, DAILY DOSE UNIT: MG
     Route: 048
     Dates: start: 20080717
  9. METHOCARBAMOL. [Concomitant]
     Active Substance: METHOCARBAMOL
     Indication: MUSCULOSKELETAL STIFFNESS
  10. IMITREX [Concomitant]
     Active Substance: SUMATRIPTAN SUCCINATE
     Indication: MIGRAINE
     Route: 030
     Dates: start: 20080717
  11. GUAIFENESIN-SR [Concomitant]
     Dosage: DAILY DOSE QUANTITY: 2400, DAILY DOSE UNIT: MG
     Route: 048
     Dates: start: 20080717
  12. BL VITAMIN E [Concomitant]
     Dosage: DAILY DOSE QUANTITY: 2000, DAILY DOSE UNIT: U
     Route: 048
     Dates: start: 20080717
  13. EPI-PEN AUTOINJECTOR [Concomitant]
     Indication: ANAPHYLACTIC REACTION
     Dosage: DAILY DOSE QUANTITY: .3, DAILY DOSE UNIT: MG
     Route: 030
     Dates: start: 20080726
  14. WELCHOL [Concomitant]
     Active Substance: COLESEVELAM HYDROCHLORIDE
     Dosage: DAILY DOSE QUANTITY: 1.875, DAILY DOSE UNIT: G
     Route: 048
     Dates: start: 20080717
  15. FLAXSEED [Concomitant]
     Active Substance: FLAX SEED
     Dosage: DAILY DOSE QUANTITY: 1000, DAILY DOSE UNIT: MG
     Route: 048
     Dates: start: 20080717
  16. PROCRIT [Concomitant]
     Active Substance: ERYTHROPOIETIN
     Indication: HAEMATOCRIT DECREASED
     Route: 058
     Dates: start: 20080717
  17. LIDOCAINE/PRILOCAINE [Concomitant]
     Active Substance: LIDOCAINE\PRILOCAINE
     Route: 061
     Dates: start: 20080726
  18. PLAVIX [Concomitant]
     Active Substance: CLOPIDOGREL BISULFATE
     Indication: HYPERCOAGULATION
     Dosage: DAILY DOSE QUANTITY: 75, DAILY DOSE UNIT: MG
     Route: 048
     Dates: start: 20080717
  19. OXYCONTIN [Concomitant]
     Active Substance: OXYCODONE HYDROCHLORIDE
     Dosage: DAILY DOSE QUANTITY: 40, DAILY DOSE UNIT: MG
     Route: 048
     Dates: start: 20080717
  20. VIVAGLOBIN [Suspect]
     Active Substance: HUMAN IMMUNOGLOBULIN G
     Route: 058
  21. METHOCARBAMOL. [Concomitant]
     Active Substance: METHOCARBAMOL
     Indication: MUSCLE SPASMS
     Dosage: DAILY DOSE QUANTITY: 750, DAILY DOSE UNIT: MG
     Route: 048
     Dates: start: 20080717
  22. PHENAZOPYRADINE [Concomitant]
     Indication: NEUROGENIC BLADDER
     Dosage: DAILY DOSE QUANTITY: 100, DAILY DOSE UNIT: MG
     Route: 048
     Dates: start: 20080717
  23. TEMAZEPAM. [Concomitant]
     Active Substance: TEMAZEPAM
     Dosage: DAILY DOSE QUANTITY: 30, DAILY DOSE UNIT: MG
     Route: 048
     Dates: start: 20080717
  24. ACTONEL [Concomitant]
     Active Substance: RISEDRONATE SODIUM
     Route: 048
     Dates: start: 20080717
  25. ASPIRIN. [Concomitant]
     Active Substance: ASPIRIN
     Dosage: DAILY DOSE QUANTITY: 81, DAILY DOSE UNIT: MG
     Route: 048
     Dates: start: 20080717
  26. VIVAGLOBIN [Suspect]
     Active Substance: HUMAN IMMUNOGLOBULIN G
     Indication: BLOOD IMMUNOGLOBULIN G DECREASED
     Route: 058
     Dates: start: 200808, end: 20080923
  27. MOBIC [Concomitant]
     Active Substance: MELOXICAM
     Dosage: DAILY DOSE QUANTITY: 15, DAILY DOSE UNIT: MG
     Route: 048
     Dates: start: 20080717
  28. RANITIDINE. [Concomitant]
     Active Substance: RANITIDINE
     Dosage: DAILY DOSE QUANTITY: 600, DAILY DOSE UNIT: MG
     Route: 048
     Dates: start: 20080717
  29. LORTAB [Concomitant]
     Active Substance: ACETAMINOPHEN\HYDROCODONE BITARTRATE
     Indication: PAIN
     Route: 048
     Dates: start: 20080717
  30. MULTIVITAMIN WITH IRON [Concomitant]
     Active Substance: IRON\VITAMINS
     Route: 048
     Dates: start: 20080717
  31. ATRIXTRA [Concomitant]
     Indication: HYPERCOAGULATION
     Dosage: DAILY DOSE QUANTITY: 2.5, DAILY DOSE UNIT: MG
     Route: 058
     Dates: start: 20080717
  32. PHENERGAN [Concomitant]
     Active Substance: PROMETHAZINE HYDROCHLORIDE
     Indication: NAUSEA
     Dosage: DAILY DOSE QUANTITY: 25, DAILY DOSE UNIT: MG
     Route: 048
     Dates: start: 20080717
  33. SERTRALINE HCL [Concomitant]
     Active Substance: SERTRALINE HYDROCHLORIDE
     Dosage: DAILY DOSE QUANTITY: 50, DAILY DOSE UNIT: MG
     Route: 048
     Dates: start: 20080717
  34. PRIMROSE OIL [Concomitant]
     Dosage: DAILY DOSE QUANTITY: 500, DAILY DOSE UNIT: MG
     Route: 048
     Dates: start: 20080717
  35. BORAGE OIL [Concomitant]
     Active Substance: BORAGE OIL
     Route: 048
     Dates: start: 20080717

REACTIONS (14)
  - Mental impairment [Recovered/Resolved]
  - Bladder pain [Not Recovered/Not Resolved]
  - Injection site warmth [Recovered/Resolved]
  - Injection site swelling [Recovered/Resolved]
  - Influenza like illness [Recovered/Resolved]
  - Nausea [Recovered/Resolved]
  - Infusion site mass [Unknown]
  - Pyrexia [Recovered/Resolved]
  - Infusion site mass [Recovered/Resolved]
  - Fatigue [Recovered/Resolved]
  - Headache [Recovered/Resolved]
  - Injection site reaction [Unknown]
  - Injection site erythema [Recovered/Resolved]
  - Pain [Recovered/Resolved]

NARRATIVE: CASE EVENT DATE: 200808
